FAERS Safety Report 5064888-6 (Version None)
Quarter: 2006Q3

REPORT INFORMATION
  Report Type: 
  Country: None (occurrence: None)
  Receive Date: 20060725
  Receipt Date: 20060710
  Transmission Date: 20061208
  Serious: Yes (Hospitalization, Other)
  Sender: FDA-Public Use
  Company Number: US200607001477

PATIENT
  Age: 56 Year
  Sex: Female
  Weight: 104.3 kg

DRUGS (3)
  1. HUMATROPE [Suspect]
     Indication: PITUITARY TUMOUR BENIGN
     Dosage: 0.4 MG, 6/W
     Dates: start: 20040101
  2. HUMATROPEN [Concomitant]
  3. CORTICOSTEROIDS [Concomitant]

REACTIONS (9)
  - ADRENAL INSUFFICIENCY [None]
  - BLINDNESS UNILATERAL [None]
  - GAIT DISTURBANCE [None]
  - MENINGITIS [None]
  - MUSCLE SPASMS [None]
  - OPTIC NERVE NEOPLASM [None]
  - PHARMACEUTICAL PRODUCT COMPLAINT [None]
  - POST PROCEDURAL COMPLICATION [None]
  - VISUAL ACUITY REDUCED [None]
